FAERS Safety Report 7384283-4 (Version None)
Quarter: 2011Q1

REPORT INFORMATION
  Report Type: 
  Country: None (occurrence: None)
  Receive Date: 20110330
  Receipt Date: 20110321
  Transmission Date: 20110831
  Serious: Yes (Life-Threatening, Disabling)
  Sender: FDA-Public Use
  Company Number: US-MERCK-1103USA02867

PATIENT
  Age: 53 Year
  Sex: Female

DRUGS (3)
  1. COZAAR [Suspect]
     Route: 048
     Dates: start: 20060101, end: 20101201
  2. COZAAR [Suspect]
     Route: 048
     Dates: start: 20101201
  3. SYNTHROID [Concomitant]
     Route: 065

REACTIONS (6)
  - DIARRHOEA [None]
  - ABDOMINAL DISCOMFORT [None]
  - ASTHENIA [None]
  - LETHARGY [None]
  - BLOOD PRESSURE INCREASED [None]
  - WEIGHT DECREASED [None]
